FAERS Safety Report 17997413 (Version 3)
Quarter: 2020Q3

REPORT INFORMATION
  Report Type: Other
  Country: CN (occurrence: CN)
  Receive Date: 20200709
  Receipt Date: 20200723
  Transmission Date: 20201103
  Serious: Yes (Hospitalization)
  Sender: FDA-Public Use
  Company Number: CN-ROCHE-2636709

PATIENT
  Age: 54 Year
  Sex: Male

DRUGS (1)
  1. ACTILYSE [Suspect]
     Active Substance: ALTEPLASE
     Indication: CEREBRAL INFARCTION
     Route: 042

REACTIONS (6)
  - Aortic dissection [Unknown]
  - Seizure [Recovered/Resolved]
  - Cerebral infarction [Unknown]
  - Salivary hypersecretion [Unknown]
  - Loss of consciousness [Unknown]
  - Epilepsy [Unknown]
